FAERS Safety Report 25723974 (Version 1)
Quarter: 2025Q3

REPORT INFORMATION
  Report Type: Spontaneous
  Country: EU (occurrence: EU)
  Receive Date: 20250825
  Receipt Date: 20250825
  Transmission Date: 20251021
  Serious: Yes (Death, Life-Threatening, Other)
  Sender: CELLTRION
  Company Number: EU-MYLANLABS-2025M1057605

PATIENT

DRUGS (4)
  1. RITUXIMAB [Suspect]
     Active Substance: RITUXIMAB
     Indication: Central nervous system lymphoma
  2. RITUXIMAB [Suspect]
     Active Substance: RITUXIMAB
  3. CYTARABINE [Suspect]
     Active Substance: CYTARABINE
     Indication: Central nervous system lymphoma
  4. CYTARABINE [Suspect]
     Active Substance: CYTARABINE

REACTIONS (4)
  - Disease progression [Fatal]
  - Drug ineffective [Fatal]
  - Infection [Unknown]
  - Infection [Unknown]
